FAERS Safety Report 6468993-9 (Version None)
Quarter: 2009Q4

REPORT INFORMATION
  Report Type: 
  Country: None (occurrence: None)
  Receive Date: 20091203
  Receipt Date: 20091123
  Transmission Date: 20100525
  Serious: Yes (Other)
  Sender: FDA-Public Use
  Company Number: PHEH2009US11367

PATIENT
  Sex: Female
  Weight: 63.492 kg

DRUGS (2)
  1. RECLAST [Suspect]
     Indication: OSTEOPOROSIS
     Dosage: 5 MG, ONCE A YEAR
     Route: 042
     Dates: start: 20090709, end: 20090709
  2. CRESTOR [Concomitant]
     Dosage: 20 MG, QD
     Route: 048

REACTIONS (2)
  - BACK PAIN [None]
  - SYNCOPE [None]
